FAERS Safety Report 4719579-5 (Version None)
Quarter: 2005Q3

REPORT INFORMATION
  Report Type: 
  Country: None (occurrence: None)
  Receive Date: 20050721
  Receipt Date: 20031125
  Transmission Date: 20060218
  Serious: Yes (Hospitalization)
  Sender: FDA-Public Use
  Company Number: US-GLAXOSMITHKLINE-A0441695A

PATIENT
  Sex: Female

DRUGS (8)
  1. AVANDIA [Suspect]
     Route: 048
  2. DYAZIDE [Concomitant]
     Indication: DRUG USE FOR UNKNOWN INDICATION
     Route: 048
  3. XANAX [Concomitant]
     Indication: DRUG USE FOR UNKNOWN INDICATION
     Route: 048
  4. CELEBREX [Concomitant]
     Indication: DRUG USE FOR UNKNOWN INDICATION
     Route: 048
  5. LASIX [Concomitant]
  6. STARLIX [Concomitant]
  7. LANOXIN [Concomitant]
  8. SYNTHROID [Concomitant]

REACTIONS (2)
  - ACUTE PULMONARY OEDEMA [None]
  - OEDEMA PERIPHERAL [None]
